FAERS Safety Report 8458871 (Version 6)
Quarter: 2013Q1

REPORT INFORMATION
  Report Type: Report from Study
  Country: TR (occurrence: TR)
  Receive Date: 20120314
  Receipt Date: 20130219
  Transmission Date: 20140127
  Serious: Yes (Hospitalization)
  Sender: FDA-Public Use
  Company Number: TR-JNJFOC-20120303592

PATIENT
  Age: 73 Year
  Sex: Male
  Weight: 90 kg

DRUGS (4)
  1. ABIRATERONE ACETATE [Suspect]
     Route: 048
  2. ABIRATERONE ACETATE [Suspect]
     Indication: PROSTATE CANCER METASTATIC
     Dosage: THIS PERIOD COVERS 2 CYCLES (CYCLE 1 AND 2) OF THERAPY
     Route: 048
     Dates: start: 20111019, end: 20120118
  3. CEFTRIAXONE [Concomitant]
     Indication: URINARY TRACT INFECTION
     Dates: start: 20111204, end: 20111208
  4. PREDNISOLONE [Concomitant]
     Indication: PROSTATE CANCER METASTATIC
     Route: 048
     Dates: start: 20111018, end: 20120118

REACTIONS (5)
  - Decreased appetite [Recovered/Resolved]
  - Gastroenteritis [Recovered/Resolved]
  - Urinary tract infection [Recovered/Resolved]
  - Fatigue [Recovered/Resolved]
  - Memory impairment [Recovered/Resolved]
